FAERS Safety Report 7241454-5 (Version None)
Quarter: 2011Q1

REPORT INFORMATION
  Report Type: 
  Country: None (occurrence: None)
  Receive Date: 20110124
  Receipt Date: 20110111
  Transmission Date: 20110831
  Serious: Yes (Death, Hospitalization)
  Sender: FDA-Public Use
  Company Number: DE-ROCHE-754922

PATIENT
  Age: 82 Year
  Sex: Male
  Weight: 59 kg

DRUGS (2)
  1. CAPECITABINE [Suspect]
     Route: 048
     Dates: start: 20100216, end: 20100419
  2. AVASTIN [Concomitant]
     Dosage: GIVEN ON DAY 1 OF CYCLE

REACTIONS (4)
  - VOMITING [None]
  - FALL [None]
  - NEOPLASM MALIGNANT [None]
  - DIZZINESS [None]
